FAERS Safety Report 8961468 (Version 1)
Quarter: 2012Q4

REPORT INFORMATION
  Report Type: 
  Country: US (occurrence: US)
  Receive Date: 20121213
  Receipt Date: 20121213
  Transmission Date: 20130627
  Serious: No
  Sender: FDA-Public Use
  Company Number: US-ALLERGAN-1203477US

PATIENT
  Age: 56 Year
  Sex: Female

DRUGS (2)
  1. ACZONE [Suspect]
     Indication: ROSACEA
     Dosage: UNK
     Route: 061
     Dates: start: 201202
  2. NEUTRAGENA SOAP [Concomitant]
     Indication: DRUG USE FOR UNKNOWN INDICATION

REACTIONS (2)
  - Rosacea [Not Recovered/Not Resolved]
  - Drug ineffective [Unknown]
